FAERS Safety Report 8621362-5 (Version None)
Quarter: 2012Q3

REPORT INFORMATION
  Report Type: 
  Country: None (occurrence: None)
  Receive Date: 20120824
  Receipt Date: 20120820
  Transmission Date: 20120928
  Serious: Yes (Other)
  Sender: FDA-Public Use
  Company Number: CA-ABBOTT-12P-028-0970432-00

PATIENT
  Sex: Male
  Weight: 72.64 kg

DRUGS (1)
  1. LUPRON DEPOT [Suspect]
     Indication: PROSTATE CANCER
     Dates: start: 20031003

REACTIONS (5)
  - FALL [None]
  - EMBOLISM [None]
  - FEMUR FRACTURE [None]
  - URINARY TRACT INFECTION [None]
  - OSTEOPOROSIS [None]
